FAERS Safety Report 11221861 (Version 1)
Quarter: 2015Q2

REPORT INFORMATION
  Report Type: Report from Study
  Country: NO (occurrence: NO)
  Receive Date: 20150626
  Receipt Date: 20150626
  Transmission Date: 20150821
  Serious: Yes (Hospitalization, Other)
  Sender: FDA-Public Use
  Company Number: NO-GLAXOSMITHKLINE INC.-NO2015GSK068924

PATIENT
  Age: 74 Year
  Sex: Female
  Weight: 70 kg

DRUGS (4)
  1. SOMAC [Concomitant]
     Active Substance: PANTOPRAZOLE SODIUM
     Dosage: 20 MG, UNK
     Dates: start: 20150105
  2. TRAMETINIB [Suspect]
     Active Substance: TRAMETINIB
     Indication: METASTATIC MALIGNANT MELANOMA
     Dosage: 2 MG, QD
     Dates: start: 20150316
  3. DABRAFENIB [Suspect]
     Active Substance: DABRAFENIB
     Indication: METASTATIC MALIGNANT MELANOMA
     Dosage: 75 MG, BID
     Dates: start: 20150216
  4. MEDROL [Concomitant]
     Active Substance: METHYLPREDNISOLONE
     Indication: METASTASES TO CENTRAL NERVOUS SYSTEM
     Dosage: 8 MG, UNK
     Route: 048
     Dates: start: 20150105

REACTIONS (2)
  - Delirium [Recovered/Resolved]
  - Syncope [Unknown]

NARRATIVE: CASE EVENT DATE: 20150506
